FAERS Safety Report 6276630-1 (Version None)
Quarter: 2009Q3

REPORT INFORMATION
  Report Type: 
  Country: None (occurrence: None)
  Receive Date: 20090722
  Receipt Date: 20080619
  Transmission Date: 20100115
  Serious: No
  Sender: FDA-Public Use
  Company Number: US-BRISTOL-MYERS SQUIBB COMPANY-14236475

PATIENT

DRUGS (3)
  1. COUMADIN [Suspect]
  2. PLAVIX [Concomitant]
     Dosage: 1 DF = 75 UNIT NOT SPECIFIED.
  3. ASPIRIN [Concomitant]
     Dosage: 1 DF = 325 UNIT NOT SPECIFIED.

REACTIONS (1)
  - DRUG INTOLERANCE [None]
